FAERS Safety Report 6115706-6 (Version None)
Quarter: 2009Q1

REPORT INFORMATION
  Report Type: 
  Country: None (occurrence: None)
  Receive Date: 20090313
  Receipt Date: 20090304
  Transmission Date: 20090719
  Serious: Yes (Death)
  Sender: FDA-Public Use
  Company Number: US-B.I. PHARMACEUTICALS,INC./RIDGEFIELD-2009-DE-02051GD

PATIENT
  Sex: Female

DRUGS (7)
  1. NEVIRAPINE [Suspect]
     Indication: HIV INFECTION
     Dosage: 200MG
  2. NEVIRAPINE [Suspect]
     Dosage: 400MG
  3. LAMIVUDINE [Suspect]
     Indication: HIV INFECTION
  4. ANTI-HIV AGENTS [Suspect]
     Indication: HIV INFECTION
  5. ISONIAZID [Suspect]
     Indication: TUBERCULOSIS
  6. ETHAMBUTOL HCL [Suspect]
     Indication: TUBERCULOSIS
  7. COTRIMOXAZOLE [Suspect]
     Indication: TUBERCULOSIS

REACTIONS (1)
  - HEPATOTOXICITY [None]
